FAERS Safety Report 6746178-6 (Version None)
Quarter: 2010Q2

REPORT INFORMATION
  Report Type: 
  Country: None (occurrence: None)
  Receive Date: 20100528
  Receipt Date: 20090421
  Transmission Date: 20101027
  Serious: No
  Sender: FDA-Public Use
  Company Number: US-ASTRAZENECA-2009UW10269

PATIENT
  Sex: Male

DRUGS (4)
  1. PRILOSEC [Suspect]
     Indication: DYSPEPSIA
     Dosage: 1 TAB, DAILY
     Route: 048
     Dates: start: 19980101
  2. COZAAR [Concomitant]
  3. CARTOZIN [Concomitant]
  4. PLAVIX [Concomitant]

REACTIONS (1)
  - NEUROPATHY PERIPHERAL [None]
